FAERS Safety Report 7118811-0 (Version None)
Quarter: 2010Q4

REPORT INFORMATION
  Report Type: 
  Country: None (occurrence: None)
  Receive Date: 20101123
  Receipt Date: 20100922
  Transmission Date: 20110411
  Serious: No
  Sender: FDA-Public Use
  Company Number: US-KINGPHARMUSA00001-K201001198

PATIENT
  Age: 80 Year
  Sex: Female

DRUGS (2)
  1. FLECTOR [Suspect]
     Indication: OEDEMA PERIPHERAL
     Dosage: {0.5 PATCH APPLIED TO MEDIAL LEFT ANKLE, BID
     Route: 061
  2. FLECTOR [Suspect]
     Indication: PAIN

REACTIONS (1)
  - ANGINA PECTORIS [None]
